FAERS Safety Report 4748141-3 (Version None)
Quarter: 2005Q3

REPORT INFORMATION
  Report Type: 
  Country: None (occurrence: None)
  Receive Date: 20050818
  Receipt Date: 20050811
  Transmission Date: 20060218
  Serious: Yes (Other)
  Sender: FDA-Public Use
  Company Number: PHFR2005CY02743

PATIENT
  Age: 61 Year
  Sex: Male

DRUGS (3)
  1. ASPIRIN [Concomitant]
     Dosage: 75MG/DAY
  2. MEDROL [Concomitant]
     Dosage: 16 MG, TID
  3. LESCOL [Suspect]
     Indication: HYPERCHOLESTEROLAEMIA
     Dosage: 80MG/DAY
     Route: 048

REACTIONS (2)
  - COLITIS ULCERATIVE [None]
  - DIARRHOEA [None]
